FAERS Safety Report 8502140-4 (Version None)
Quarter: 2012Q3

REPORT INFORMATION
  Report Type: 
  Country: None (occurrence: None)
  Receive Date: 20120711
  Receipt Date: 20120703
  Transmission Date: 20120928
  Serious: Yes (Hospitalization, Other)
  Sender: FDA-Public Use
  Company Number: FR-JNJFOC-20110311377

PATIENT
  Age: 77 Year
  Sex: Female

DRUGS (10)
  1. LOVENOX [Concomitant]
  2. LASIX [Concomitant]
  3. TRANXENE [Interacting]
     Indication: PRODUCT USED FOR UNKNOWN INDICATION
     Route: 048
  4. ALFUZOSIN HYDROCHLORIDE [Concomitant]
  5. IMOVANE [Interacting]
     Indication: PRODUCT USED FOR UNKNOWN INDICATION
     Route: 048
  6. HALDOL [Suspect]
     Indication: PRODUCT USED FOR UNKNOWN INDICATION
     Route: 048
  7. PRAZEPAM [Interacting]
     Indication: PRODUCT USED FOR UNKNOWN INDICATION
     Route: 048
  8. ACETAMINOPHEN [Concomitant]
     Route: 048
  9. TRAMADOL HCL [Interacting]
     Indication: PRODUCT USED FOR UNKNOWN INDICATION
     Route: 048
  10. PERINDOPRIL ERBUMINE [Concomitant]

REACTIONS (8)
  - TOXICITY TO VARIOUS AGENTS [None]
  - AGGRESSION [None]
  - RESPIRATORY DEPRESSION [None]
  - DRUG INTERACTION [None]
  - CONFUSIONAL STATE [None]
  - HYPOXIA [None]
  - HYPERCAPNIA [None]
  - SOMNOLENCE [None]
